FAERS Safety Report 6240655-2 (Version None)
Quarter: 2009Q2

REPORT INFORMATION
  Report Type: 
  Country: None (occurrence: None)
  Receive Date: 20090623
  Receipt Date: 20090105
  Transmission Date: 20091009
  Serious: No
  Sender: FDA-Public Use
  Company Number: US-ASTRAZENECA-2008UW26876

PATIENT
  Age: 66 Year
  Sex: Female

DRUGS (12)
  1. PULMICORT FLEXHALER [Suspect]
     Indication: CHRONIC OBSTRUCTIVE PULMONARY DISEASE
     Dosage: 180 MCG, 2 PUFFS TWICE DAILY
     Route: 055
     Dates: start: 20061101, end: 20080701
  2. PULMICORT FLEXHALER [Suspect]
     Dosage: 180 MCG, 1 PUFF ONCE DAILY
     Route: 055
  3. THEOPHYLLINE-SR [Concomitant]
  4. HYDROCHLOROTHIAZIDE [Concomitant]
  5. PLAVIX [Concomitant]
  6. COZAAR [Concomitant]
  7. LIPITOR [Concomitant]
  8. AMLODIPINE [Concomitant]
  9. BUSPIRONE HCL [Concomitant]
  10. GUAIFENEX [Concomitant]
  11. COMBIVENT [Concomitant]
     Dosage: EVERY 4 HOURS
  12. OXYGEN [Concomitant]
     Dosage: 2 LITERS

REACTIONS (2)
  - DRUG INEFFECTIVE [None]
  - DYSPNOEA [None]
